FAERS Safety Report 9908628 (Version 1)
Quarter: 2014Q1

REPORT INFORMATION
  Report Type: Spontaneous
  Country: FR (occurrence: FR)
  Receive Date: 20140219
  Receipt Date: 20140219
  Transmission Date: 20141002
  Serious: Yes (Hospitalization, Other)
  Sender: FDA-Public Use
  Company Number: FR-009507513-1402FRA007038

PATIENT
  Sex: Female

DRUGS (1)
  1. STROMECTOL [Suspect]
     Indication: ACARODERMATITIS
     Dosage: UNK
     Route: 048
     Dates: start: 2013, end: 2013

REACTIONS (1)
  - Pancreatitis [Unknown]
